FAERS Safety Report 23171142 (Version 2)
Quarter: 2023Q4

REPORT INFORMATION
  Report Type: Spontaneous
  Country: US (occurrence: US)
  Receive Date: 20231110
  Receipt Date: 20231210
  Transmission Date: 20240110
  Serious: No
  Sender: FDA-Public Use
  Company Number: US-GLAXOSMITHKLINE-US2023151584

PATIENT
  Sex: Female

DRUGS (3)
  1. ZEJULA [Suspect]
     Active Substance: NIRAPARIB
     Indication: Endometrial cancer
     Dosage: 200 MG, QD
     Route: 048
     Dates: start: 20230907
  2. ZEJULA [Suspect]
     Active Substance: NIRAPARIB
     Indication: Endometrial cancer
     Dosage: 200 MG, QD
     Route: 048
     Dates: start: 20230907
  3. ZEJULA [Suspect]
     Active Substance: NIRAPARIB
     Dosage: 200MG SUNDAY, TUESDAY, WEDNESDAYTHURSDAY, AND SATURDAY AND 100MG MONDAY AND FRIDAY

REACTIONS (21)
  - Fatigue [Not Recovered/Not Resolved]
  - Lethargy [Unknown]
  - Feeling abnormal [Unknown]
  - Pain in extremity [Unknown]
  - Abdominal discomfort [Recovering/Resolving]
  - Product use in unapproved indication [Unknown]
  - Off label use [Unknown]
  - Nausea [Unknown]
  - Brain fog [Unknown]
  - Rhinorrhoea [Unknown]
  - Throat irritation [Unknown]
  - Abnormal faeces [Unknown]
  - Sleep disorder [Unknown]
  - Hernia [Unknown]
  - Blood pressure increased [Unknown]
  - Tachycardia [Unknown]
  - Headache [Unknown]
  - Mean cell volume increased [Unknown]
  - Mean cell haemoglobin increased [Unknown]
  - Red blood cell count decreased [Unknown]
  - Blood calcium increased [Unknown]
